FAERS Safety Report 7388184-7 (Version None)
Quarter: 2011Q2

REPORT INFORMATION
  Report Type: 
  Country: None (occurrence: None)
  Receive Date: 20110401
  Receipt Date: 20110324
  Transmission Date: 20111010
  Serious: Yes (Hospitalization)
  Sender: FDA-Public Use
  Company Number: JP-ASTELLAS-2011JP002143

PATIENT
  Age: 74 Year
  Sex: Male

DRUGS (2)
  1. MIGLITOL [Suspect]
     Dosage: 50 MG, UNKNOWN/D
     Route: 048
     Dates: start: 20100226, end: 20110309
  2. VESICARE [Suspect]
     Indication: HYPERTONIC BLADDER
     Dosage: 5 MG, UNKNOWN/D
     Route: 048
     Dates: start: 20100917, end: 20110218

REACTIONS (2)
  - THROMBOCYTOPENIA [None]
  - GRANULOCYTOPENIA [None]
